FAERS Safety Report 9668472 (Version 1)
Quarter: 2013Q4

REPORT INFORMATION
  Report Type: Spontaneous
  Country: US (occurrence: US)
  Receive Date: 20131105
  Receipt Date: 20131105
  Transmission Date: 20140711
  Serious: Yes (Hospitalization)
  Sender: FDA-Public Use
  Company Number: US-ROCHE-1297109

PATIENT
  Age: 67 Year
  Sex: Female

DRUGS (5)
  1. CEFTRIAXONE [Suspect]
     Indication: CELLULITIS
     Route: 065
  2. CLINDAMYCIN [Suspect]
     Indication: CELLULITIS
     Route: 042
  3. VANCOMYCIN [Suspect]
     Indication: CELLULITIS
     Route: 042
  4. LINEZOLID [Suspect]
     Indication: CELLULITIS
     Route: 065
  5. CEFEPIME [Suspect]
     Indication: CELLULITIS
     Route: 065

REACTIONS (1)
  - Acute generalised exanthematous pustulosis [Recovering/Resolving]
